FAERS Safety Report 18762186 (Version 1)
Quarter: 2021Q1

REPORT INFORMATION
  Report Type: Spontaneous
  Country: US (occurrence: US)
  Receive Date: 20210120
  Receipt Date: 20210120
  Transmission Date: 20210419
  Serious: No
  Sender: FDA-Public Use
  Company Number: US-MYLANLABS-2021M1002195

PATIENT
  Sex: Female
  Weight: 29 kg

DRUGS (7)
  1. CLONIDINE TRANSDERMAL SYSTEM [Suspect]
     Active Substance: CLONIDINE
     Indication: AUTONOMIC NERVOUS SYSTEM IMBALANCE
     Dosage: UNK
     Route: 062
     Dates: start: 2020
  2. DIAZEPAM. [Concomitant]
     Active Substance: DIAZEPAM
     Dosage: UNK, PRN
     Route: 054
  3. KEPPRA [Concomitant]
     Active Substance: LEVETIRACETAM
     Dosage: 5 MILLILITER, TID
  4. CYPROHEPTADINE. [Concomitant]
     Active Substance: CYPROHEPTADINE
     Dosage: 6 MILLILITER, TID
  5. CLONIDINE TRANSDERMAL SYSTEM [Suspect]
     Active Substance: CLONIDINE
     Indication: AUTONOMIC NERVOUS SYSTEM IMBALANCE
     Dosage: DAY
     Route: 062
     Dates: start: 2020
  6. GABAPENTIN. [Concomitant]
     Active Substance: GABAPENTIN
     Dosage: 8 MILLILITER, TID
  7. DIAZEPAM. [Concomitant]
     Active Substance: DIAZEPAM
     Dosage: UNK, PRN

REACTIONS (2)
  - Device issue [Not Recovered/Not Resolved]
  - Off label use [Not Recovered/Not Resolved]
